FAERS Safety Report 9425333 (Version 1)
Quarter: 2013Q3

REPORT INFORMATION
  Report Type: Report from Study
  Country: CA (occurrence: CA)
  Receive Date: 20130729
  Receipt Date: 20130729
  Transmission Date: 20140515
  Serious: Yes (Hospitalization)
  Sender: FDA-Public Use
  Company Number: CA-JNJFOC-20130715255

PATIENT
  Age: 67 Year
  Sex: Female
  Weight: 64.7 kg

DRUGS (5)
  1. REMICADE [Suspect]
     Indication: CROHN^S DISEASE
     Route: 042
     Dates: start: 20120104, end: 2013
  2. REMICADE [Suspect]
     Indication: CROHN^S DISEASE
     Route: 042
     Dates: start: 2013
  3. PENTASA [Concomitant]
     Dosage: UNSPECIFIED DOSE UNITS IN MG
     Route: 065
  4. METHOTREXATE [Concomitant]
     Dosage: UNSPECIFIED DOSE UNITS IN MG
     Route: 065
  5. FLAGYL [Concomitant]
     Dosage: UNSPECIFIED DOSE UNITS IN MG
     Route: 065

REACTIONS (1)
  - Intestinal resection [Unknown]
